FAERS Safety Report 7265232-6 (Version None)
Quarter: 2011Q1

REPORT INFORMATION
  Report Type: 
  Country: None (occurrence: None)
  Receive Date: 20110131
  Receipt Date: 20110127
  Transmission Date: 20110831
  Serious: No
  Sender: FDA-Public Use
  Company Number: US-ROXANE LABORATORIES, INC.-2011-RO-00008RO

PATIENT
  Sex: Female

DRUGS (1)
  1. FUROSEMIDE [Suspect]
     Indication: RENAL FAILURE
     Dosage: 40 MG
     Route: 048
     Dates: start: 20101229, end: 20110104

REACTIONS (2)
  - DRUG INEFFECTIVE [None]
  - FLUID RETENTION [None]
